FAERS Safety Report 8173503-4 (Version None)
Quarter: 2012Q1

REPORT INFORMATION
  Report Type: 
  Country: None (occurrence: None)
  Receive Date: 20120229
  Receipt Date: 20120217
  Transmission Date: 20120608
  Serious: No
  Sender: FDA-Public Use
  Company Number: US-BRACCO-007314

PATIENT
  Age: 58 Year
  Sex: Female

DRUGS (10)
  1. AMLODIPINE [Concomitant]
     Indication: BLOOD PRESSURE
  2. MULTIHANCE [Suspect]
     Indication: MYOCARDIAL ISCHAEMIA
     Route: 042
     Dates: start: 20111109, end: 20111109
  3. MULTIHANCE [Suspect]
     Indication: CORONARY ARTERY DISEASE
     Route: 042
     Dates: start: 20111109, end: 20111109
  4. ALL OTHER THERAPEUTIC PRODUCTS [Concomitant]
  5. GADOLINIUM [Suspect]
     Dates: start: 20100801, end: 20100801
  6. MULTIHANCE [Suspect]
     Indication: NUCLEAR MAGNETIC RESONANCE IMAGING
     Route: 042
     Dates: start: 20111109, end: 20111109
  7. ATACAND [Concomitant]
     Indication: BLOOD PRESSURE
  8. BYSTOLIC [Concomitant]
     Indication: BLOOD PRESSURE
  9. LEXISCAN [Concomitant]
     Dates: start: 20111101, end: 20111101
  10. GADOLINIUM [Suspect]
     Dates: start: 20100101, end: 20100101

REACTIONS (8)
  - HAIR METAL TEST ABNORMAL [None]
  - BIOPSY SKIN ABNORMAL [None]
  - PYREXIA [None]
  - PARAESTHESIA [None]
  - DIZZINESS [None]
  - RASH [None]
  - NAUSEA [None]
  - THERAPEUTIC AGENT URINE POSITIVE [None]
